FAERS Safety Report 24719930 (Version 1)
Quarter: 2024Q4

REPORT INFORMATION
  Report Type: Spontaneous
  Country: JP (occurrence: JP)
  Receive Date: 20241211
  Receipt Date: 20241211
  Transmission Date: 20250115
  Serious: Yes (Other)
  Sender: CHEPLAPHARM
  Company Number: JP-CLGN-JP-CLI-2024-010646

PATIENT
  Age: 59 Year
  Sex: Female

DRUGS (1)
  1. HYDROXYUREA [Suspect]
     Active Substance: HYDROXYUREA
     Indication: Essential thrombocythaemia

REACTIONS (1)
  - Haemorrhagic cerebral infarction [Unknown]
